FAERS Safety Report 18111672 (Version 3)
Quarter: 2020Q3

REPORT INFORMATION
  Report Type: Spontaneous
  Country: US (occurrence: US)
  Receive Date: 20200805
  Receipt Date: 20200929
  Transmission Date: 20201103
  Serious: Yes (Hospitalization)
  Sender: FDA-Public Use
  Company Number: US-ROCHE-2653091

PATIENT
  Age: 76 Year
  Sex: Male
  Weight: 64.92 kg

DRUGS (6)
  1. LUCENTIS [Suspect]
     Active Substance: RANIBIZUMAB
     Dosage: AFTER 3 MONTHS, INJECTED IN LEFT EYE
     Route: 050
  2. VITAMIN D3 [Concomitant]
     Active Substance: CHOLECALCIFEROL
     Dosage: SUPPLEMENT
     Route: 048
     Dates: start: 202002
  3. SIMVASTATIN. [Concomitant]
     Active Substance: SIMVASTATIN
     Route: 048
     Dates: start: 2015
  4. LUCENTIS [Suspect]
     Active Substance: RANIBIZUMAB
     Indication: NEOVASCULAR AGE-RELATED MACULAR DEGENERATION
     Dosage: LEFT EYE, MONTHLY X 3 MONTHS THEN EVERY 6 WEEKS
     Route: 050
     Dates: start: 20200330, end: 20200720
  5. LUCENTIS [Suspect]
     Active Substance: RANIBIZUMAB
     Dosage: QUANTITY?0.05 ML, FOR 3 MONTHS, INJECTED IN LEFT EYE
     Route: 050
     Dates: start: 20200421, end: 20200421
  6. ZYRTEC (UNITED STATES) [Concomitant]
     Indication: HYPERSENSITIVITY

REACTIONS (17)
  - Muscular weakness [Unknown]
  - Balance disorder [Unknown]
  - Fatigue [Unknown]
  - Pain [Unknown]
  - Weight decreased [Not Recovered/Not Resolved]
  - Hyperresponsive to stimuli [Unknown]
  - Pain [Not Recovered/Not Resolved]
  - Headache [Not Recovered/Not Resolved]
  - Decreased appetite [Unknown]
  - Dizziness [Not Recovered/Not Resolved]
  - Nausea [Not Recovered/Not Resolved]
  - Tinnitus [Not Recovered/Not Resolved]
  - Hypersomnia [Not Recovered/Not Resolved]
  - Feeling abnormal [Unknown]
  - Muscular weakness [Not Recovered/Not Resolved]
  - Loss of libido [Not Recovered/Not Resolved]
  - Feeling jittery [Unknown]

NARRATIVE: CASE EVENT DATE: 20200421
